FAERS Safety Report 5143493-7 (Version None)
Quarter: 2006Q4

REPORT INFORMATION
  Report Type: 
  Country: None (occurrence: None)
  Receive Date: 20061101
  Receipt Date: 20061101
  Transmission Date: 20070319
  Serious: Yes (Other)
  Sender: FDA-Public Use
  Company Number: None

PATIENT
  Age: 47 Year
  Sex: Male
  Weight: 100 kg

DRUGS (8)
  1. FOSPHENYTOIN [Suspect]
     Indication: CONVULSION PROPHYLAXIS
     Dosage: 1500MG ONCE IV DRIP
     Route: 041
     Dates: start: 20060502, end: 20060502
  2. PHENYTOIN SODIUM CAP [Suspect]
     Indication: CONVULSION PROPHYLAXIS
     Dosage: 100MG ONCE IV BOLUS
     Route: 040
     Dates: start: 20060502, end: 20060502
  3. AMIODARONE HCL [Concomitant]
  4. NOREPINEPHRINE BITARTRATE [Concomitant]
  5. VASOPRESSIN [Concomitant]
  6. MIDAZOLAM [Concomitant]
  7. SODIUM CHLORIDE [Concomitant]
  8. PIPERACILLIN AND TAZOBACTAM [Concomitant]

REACTIONS (4)
  - BRADYCARDIA [None]
  - GENERAL PHYSICAL HEALTH DETERIORATION [None]
  - HYPOTENSION [None]
  - RESUSCITATION [None]
